FAERS Safety Report 6130673-7 (Version None)
Quarter: 2009Q1

REPORT INFORMATION
  Report Type: 
  Country: None (occurrence: None)
  Receive Date: 20090323
  Receipt Date: 20090227
  Transmission Date: 20090719
  Serious: Yes (Other)
  Sender: FDA-Public Use
  Company Number: 001#1#2008-00435

PATIENT
  Sex: Female
  Weight: 95 kg

DRUGS (5)
  1. NEUPRO [Suspect]
     Dosage: 8 MG, QD, 8MILLIGRAM/24HOURS; UNIT DOSE: 8 MILLIGRAM/24HOURS; TRANSDERMAL
     Route: 062
     Dates: start: 20080101
  2. COMTESS [Concomitant]
  3. SINEMET [Concomitant]
  4. PK-MERZ [Concomitant]
  5. METFORMIN [Concomitant]

REACTIONS (3)
  - DEPRESSION [None]
  - GAIT DISTURBANCE [None]
  - PRODUCT QUALITY ISSUE [None]
